FAERS Safety Report 7264837-6 (Version None)
Quarter: 2011Q1

REPORT INFORMATION
  Report Type: 
  Country: None (occurrence: None)
  Receive Date: 20110131
  Receipt Date: 20100826
  Transmission Date: 20110831
  Serious: Yes (Hospitalization)
  Sender: FDA-Public Use
  Company Number: US-BAYER-201034863NA

PATIENT
  Sex: Female
  Weight: 87.273 kg

DRUGS (22)
  1. YASMIN [Suspect]
     Route: 048
     Dates: start: 20051025, end: 20051219
  2. UNKNOWN DRUG [Concomitant]
     Indication: MIGRAINE
  3. LORTAB [Concomitant]
  4. RELPAX [Concomitant]
  5. NSAID'S [Concomitant]
  6. PERCOCET [Concomitant]
     Indication: HEMIPARESIS
  7. FLEXERIL [Concomitant]
  8. MOTRIN [Concomitant]
     Dates: start: 20030101
  9. DROSPIRENONE + ETHINYLESTRADIOL 20?G (24+4) [Suspect]
     Route: 048
     Dates: start: 20090108, end: 20091208
  10. CARISOPRODOL [Concomitant]
  11. BUSPIRONE [Concomitant]
  12. DROSPIRENONE + ETHINYLESTRADIOL 20?G (24+4) [Suspect]
     Route: 048
     Dates: start: 20080721, end: 20081208
  13. BENICAR [Concomitant]
     Dosage: 20 MG (DAILY DOSE), ,
  14. ALPRAZOLAM [Concomitant]
  15. MAXZIDE [Concomitant]
  16. ANGIOTENSIN II ANTAGONISTS [Concomitant]
  17. YASMIN [Suspect]
     Route: 048
     Dates: start: 20060206, end: 20061218
  18. YASMIN [Suspect]
     Route: 048
     Dates: start: 20070115, end: 20070212
  19. UNKNOWN DRUG [Concomitant]
     Indication: CARDIAC DISORDER
  20. DIAZEPAM [Concomitant]
  21. KEFLEX [Concomitant]
     Dates: start: 20030909
  22. SEROQUEL [Concomitant]
     Dosage: 50 MG (DAILY DOSE), ,

REACTIONS (22)
  - HEMIPARESIS [None]
  - CEREBRAL INFARCTION [None]
  - HEADACHE [None]
  - TONGUE BITING [None]
  - DYSPHEMIA [None]
  - ASTHENIA [None]
  - PAIN IN EXTREMITY [None]
  - CONVULSION [None]
  - INJURY [None]
  - ANXIETY [None]
  - DYSARTHRIA [None]
  - CHEST PAIN [None]
  - FACIAL SPASM [None]
  - PUPILLARY REFLEX IMPAIRED [None]
  - PARAESTHESIA [None]
  - PAIN [None]
  - MUSCULAR WEAKNESS [None]
  - HYPOAESTHESIA [None]
  - HEART RATE INCREASED [None]
  - SPEECH DISORDER [None]
  - COGWHEEL RIGIDITY [None]
  - TRANSIENT ISCHAEMIC ATTACK [None]
